FAERS Safety Report 5044456-2 (Version None)
Quarter: 2006Q3

REPORT INFORMATION
  Report Type: 
  Country: None (occurrence: None)
  Receive Date: 20060706
  Receipt Date: 20060630
  Transmission Date: 20061208
  Serious: Yes (Other)
  Sender: FDA-Public Use
  Company Number: US-GLAXOSMITHKLINE-A0610916A

PATIENT
  Sex: Female

DRUGS (2)
  1. BUPROPION HYDROCHLORIDE [Suspect]
     Route: 048
  2. CONCURRENT MEDICATIONS [Concomitant]

REACTIONS (3)
  - ACCIDENTAL EXPOSURE [None]
  - ASTHMA [None]
  - DYSPNOEA [None]
